FAERS Safety Report 23620483 (Version 1)
Quarter: 2024Q1

REPORT INFORMATION
  Report Type: Spontaneous
  Country: US (occurrence: US)
  Receive Date: 20240312
  Receipt Date: 20240312
  Transmission Date: 20240410
  Serious: Yes (Hospitalization)
  Sender: FDA-Public Use
  Company Number: US-AMGEN-USASP2024046618

PATIENT
  Age: 67 Year
  Sex: Female

DRUGS (8)
  1. REPATHA [Suspect]
     Active Substance: EVOLOCUMAB
     Indication: Blood cholesterol increased
     Dosage: 140 MILLIGRAM, Q2WK
     Route: 058
     Dates: start: 2021, end: 2022
  2. REPATHA [Suspect]
     Active Substance: EVOLOCUMAB
     Dosage: 140 MILLIGRAM, Q2WK
     Route: 058
  3. METOPROLOL [Concomitant]
     Active Substance: METOPROLOL
     Indication: Cardiac disorder
     Dosage: UNK UNK, ONCE A DAY
  4. BRILINTA [Concomitant]
     Active Substance: TICAGRELOR
     Indication: Cardiac disorder
     Dosage: UNK UNK, ONCE IN THE MORNING AND ONCE AT NIGHT/STARTED AFTER SECOND HEART ATTACK
  5. ISOSORBIDE MONONITRATE [Concomitant]
     Active Substance: ISOSORBIDE MONONITRATE
     Indication: Product used for unknown indication
     Dosage: 30MG, HALF A PILL AT NIGHT/STARTED AFTER FIRST HEART ATTACK
  6. RANOLAZINE [Concomitant]
     Active Substance: RANOLAZINE
     Indication: Cardiac disorder
     Dosage: 500 MILLIGRAM, BID
     Dates: start: 202402
  7. PLAVIX [Concomitant]
     Active Substance: CLOPIDOGREL BISULFATE
     Indication: Cardiac disorder
     Dosage: UNK
     Dates: start: 202402
  8. CLOPIDOGREL [Concomitant]
     Active Substance: CLOPIDOGREL BISULFATE
     Indication: Cardiac disorder
     Dosage: 75 MILLIGRAM
     Dates: start: 20240304

REACTIONS (2)
  - Myocardial infarction [Unknown]
  - Device use error [Unknown]

NARRATIVE: CASE EVENT DATE: 20221101
